FAERS Safety Report 24235947 (Version 1)
Quarter: 2024Q3

REPORT INFORMATION
  Report Type: Spontaneous
  Country: US (occurrence: US)
  Receive Date: 20240822
  Receipt Date: 20240822
  Transmission Date: 20241017
  Serious: Yes (Hospitalization, Other)
  Sender: IPCA
  Company Number: US-IPCA LABORATORIES LIMITED-IPC-2024-US-002039

PATIENT

DRUGS (5)
  1. QUETIAPINE [Suspect]
     Active Substance: QUETIAPINE
     Indication: Product used for unknown indication
     Dosage: UNK
     Route: 064
  2. CLONAZEPAM [Suspect]
     Active Substance: CLONAZEPAM
     Indication: Product used for unknown indication
     Dosage: UNK
     Route: 064
  3. FLUOXETINE [Suspect]
     Active Substance: FLUOXETINE HYDROCHLORIDE
     Indication: Product used for unknown indication
     Dosage: UNK
     Route: 064
  4. HYDROMORPHONE [Suspect]
     Active Substance: HYDROMORPHONE
     Indication: Product used for unknown indication
     Dosage: UNK
     Route: 064
  5. OXYCODONE [Suspect]
     Active Substance: OXYCODONE

REACTIONS (4)
  - Decerebrate posture [Recovering/Resolving]
  - Neonatal behavioural syndrome [Recovering/Resolving]
  - Neurodevelopmental delay [Recovering/Resolving]
  - Foetal exposure during pregnancy [Unknown]
